FAERS Safety Report 7936738-9 (Version None)
Quarter: 2011Q4

REPORT INFORMATION
  Report Type: 
  Country: None (occurrence: None)
  Receive Date: 20111123
  Receipt Date: 20111117
  Transmission Date: 20120403
  Serious: Yes (Other)
  Sender: FDA-Public Use
  Company Number: JP-BAYER-201010917BYL

PATIENT
  Age: 83 Year
  Sex: Male
  Weight: 44 kg

DRUGS (1)
  1. NEXAVAR [Suspect]
     Indication: HEPATIC NEOPLASM MALIGNANT
     Dosage: 400 MG, BID
     Route: 048
     Dates: start: 20100209, end: 20100216

REACTIONS (5)
  - HEPATIC FAILURE [None]
  - FATIGUE [None]
  - DECREASED APPETITE [None]
  - JAUNDICE [None]
  - PROTHROMBIN LEVEL INCREASED [None]
